FAERS Safety Report 17025100 (Version 1)
Quarter: 2019Q4

REPORT INFORMATION
  Report Type: Spontaneous
  Country: US (occurrence: US)
  Receive Date: 20191113
  Receipt Date: 20191113
  Transmission Date: 20200122
  Serious: Yes (Hospitalization)
  Sender: FDA-Public Use
  Company Number: US-PARATEK PHARMACEUTICALS, INC.-2019PTK00125

PATIENT
  Age: 59 Year
  Sex: Female

DRUGS (5)
  1. NUZYRA [Suspect]
     Active Substance: OMADACYCLINE
     Indication: BACTERIAL INFECTION
  2. NUZYRA [Suspect]
     Active Substance: OMADACYCLINE
     Indication: RENAL TRANSPLANT
  3. NUZYRA [Suspect]
     Active Substance: OMADACYCLINE
     Indication: INFLAMMATION
     Dosage: 300 MG, 1X/DAY
     Route: 048
     Dates: start: 20190927
  4. NUZYRA [Suspect]
     Active Substance: OMADACYCLINE
     Indication: KNEE ARTHROPLASTY
  5. NUZYRA [Suspect]
     Active Substance: OMADACYCLINE
     Indication: DEVICE RELATED INFECTION

REACTIONS (3)
  - Hospitalisation [Unknown]
  - Drug dose titration not performed [Not Recovered/Not Resolved]
  - Off label use [Not Recovered/Not Resolved]

NARRATIVE: CASE EVENT DATE: 2019
